FAERS Safety Report 9705230 (Version 4)
Quarter: 2014Q2

REPORT INFORMATION
  Report Type: Spontaneous
  Country: US (occurrence: US)
  Receive Date: 20131122
  Receipt Date: 20140617
  Transmission Date: 20141212
  Serious: Yes (Life-Threatening, Hospitalization, Other)
  Sender: FDA-Public Use
  Company Number: US-BAYER-2013-140553

PATIENT
  Age: 39 Year
  Sex: Female
  Weight: 60.77 kg

DRUGS (4)
  1. MIRENA [Suspect]
     Indication: CONTRACEPTION
     Dosage: 20 MCG/24HR, CONT
     Route: 015
     Dates: start: 20111020
  2. LEVOTHYROXINE [Concomitant]
  3. METFORMIN [Concomitant]
  4. SYNTHROID [Concomitant]
     Indication: BASEDOW^S DISEASE
     Dosage: UNK
     Dates: start: 2008

REACTIONS (15)
  - Device dislocation [None]
  - Foetal death [None]
  - Gestational diabetes [None]
  - Genital haemorrhage [None]
  - Haemorrhage in pregnancy [None]
  - Pregnancy with contraceptive device [None]
  - Drug ineffective [None]
  - Injury [None]
  - Emotional distress [None]
  - Abdominal pain lower [None]
  - General physical health deterioration [None]
  - Anxiety [None]
  - Anhedonia [None]
  - Device defective [None]
  - Gestational hypertension [None]
